FAERS Safety Report 4607536-9 (Version None)
Quarter: 2005Q1

REPORT INFORMATION
  Report Type: 
  Country: None (occurrence: None)
  Receive Date: 20050310
  Receipt Date: 20050301
  Transmission Date: 20050727
  Serious: Yes (Hospitalization)
  Sender: FDA-Public Use
  Company Number: 2005-01-1656

PATIENT
  Age: 34 Year
  Sex: Male
  Weight: 84 kg

DRUGS (7)
  1. REBETOL [Suspect]
     Indication: CHRONIC HEPATITIS
     Dosage: 800 MG ORAL
     Route: 048
     Dates: start: 20040823, end: 20050119
  2. INTRON A [Suspect]
     Indication: HEPATITIS C
     Dosage: SEE IMAGE
     Route: 030
     Dates: start: 20040823, end: 20040905
  3. INTRON A [Suspect]
     Indication: HEPATITIS C
     Dosage: SEE IMAGE
     Route: 030
     Dates: start: 20040906, end: 20050117
  4. INTRON A [Suspect]
     Indication: HEPATITIS C
     Dosage: SEE IMAGE
     Route: 030
     Dates: start: 20040823, end: 20050119
  5. URINORM TABLETS [Suspect]
     Indication: HYPERURICAEMIA
     Dosage: 50 MG ORAL
     Route: 048
     Dates: start: 20040830, end: 20050119
  6. URALYT-U ORAL POWDER [Suspect]
     Indication: HYPERURICAEMIA
     Dosage: 3 G ORAL
     Route: 048
     Dates: start: 20040830, end: 20050119
  7. URSO TABLETS [Concomitant]

REACTIONS (4)
  - AUTOIMMUNE DISORDER [None]
  - HEPATIC FUNCTION ABNORMAL [None]
  - HEPATOTOXICITY [None]
  - PROTHROMBIN TIME PROLONGED [None]
